FAERS Safety Report 5472431-2 (Version None)
Quarter: 2007Q3

REPORT INFORMATION
  Report Type: 
  Country: None (occurrence: None)
  Receive Date: 20070927
  Receipt Date: 20070919
  Transmission Date: 20080115
  Serious: Yes (Other)
  Sender: FDA-Public Use
  Company Number: 2007SP019188

PATIENT

DRUGS (1)
  1. MIRALAX [Suspect]
     Indication: CONSTIPATION
     Dosage: 17 GM;TID;PO
     Route: 048
     Dates: start: 20070101

REACTIONS (2)
  - OVERDOSE [None]
  - SUPRAVENTRICULAR TACHYCARDIA [None]
